FAERS Safety Report 10350711 (Version 1)
Quarter: 2014Q3

REPORT INFORMATION
  Report Type: Spontaneous
  Country: US (occurrence: US)
  Receive Date: 20140730
  Receipt Date: 20140730
  Transmission Date: 20150326
  Serious: No
  Sender: FDA-Public Use
  Company Number: US-BRISTOL-MYERS SQUIBB COMPANY-20725073

PATIENT
  Age: 53 Year
  Sex: Male
  Weight: 97.05 kg

DRUGS (3)
  1. JANUVIA [Concomitant]
     Active Substance: SITAGLIPTIN PHOSPHATE
     Indication: DIABETES MELLITUS
  2. PHENTERMINE [Concomitant]
     Active Substance: PHENTERMINE
  3. FARXIGA [Suspect]
     Active Substance: DAPAGLIFLOZIN PROPANEDIOL
     Dosage: DOSE INCREASED: 10MG/3WEEKS-BATCH NO.3864675A-EXP DATE: AUG2015
     Dates: start: 20140404

REACTIONS (1)
  - Weight decreased [Unknown]
